FAERS Safety Report 8106204-9 (Version None)
Quarter: 2012Q1

REPORT INFORMATION
  Report Type: 
  Country: None (occurrence: None)
  Receive Date: 20120130
  Receipt Date: 20120120
  Transmission Date: 20120608
  Serious: Yes (Hospitalization)
  Sender: FDA-Public Use
  Company Number: IMP_05719_2012

PATIENT
  Age: 54 Year
  Sex: Female
  Weight: 65 kg

DRUGS (6)
  1. DIVALPROEX SODIUM [Suspect]
     Indication: CONVULSION
     Dosage: 750 MG EVERY NIGHT ORAL, 1500 MG 1X INTRAVENOUS (NOT OTHERWISE SPECIFIED), 250 MG 1X/8 HOURS OTHER,
     Route: 048
  2. METHYLPREDNISOLONE [Concomitant]
  3. DORIPENEM [Suspect]
     Indication: PNEUMONIA ASPIRATION
     Dosage: 500 MG 1X/8 HOURS INTRAVENOUS (NOT OTHERWISE SPECIFIED)
     Route: 042
  4. DOXYCYCLINE [Concomitant]
  5. CLINDAMYCIN [Concomitant]
  6. ALBUTEROL SULFATE AND IPRATROPIUM BROMIDE [Concomitant]

REACTIONS (7)
  - DRUG INTERACTION [None]
  - TREATMENT NONCOMPLIANCE [None]
  - CONVULSION [None]
  - CONDITION AGGRAVATED [None]
  - CHRONIC OBSTRUCTIVE PULMONARY DISEASE [None]
  - PNEUMONIA ASPIRATION [None]
  - ANTICONVULSANT DRUG LEVEL DECREASED [None]
